FAERS Safety Report 4359550-9 (Version None)
Quarter: 2004Q2

REPORT INFORMATION
  Report Type: 
  Country: None (occurrence: None)
  Receive Date: 20040514
  Receipt Date: 20040514
  Transmission Date: 20050107
  Serious: Yes (Hospitalization)
  Sender: FDA-Public Use
  Company Number: None

PATIENT
  Age: 64 Year
  Sex: Male

DRUGS (2)
  1. CISPLATIN [Suspect]
     Indication: CARCINOMA
     Dosage: 92 MG
     Dates: start: 20030520
  2. ETOPOSIDE [Suspect]
     Indication: CARCINOMA
     Dosage: 184 MG
     Dates: start: 20030320

REACTIONS (1)
  - FEBRILE NEUTROPENIA [None]
